FAERS Safety Report 16550996 (Version 1)
Quarter: 2019Q3

REPORT INFORMATION
  Report Type: Spontaneous
  Country: US (occurrence: US)
  Receive Date: 20190528
  Receipt Date: 20190528
  Transmission Date: 20191004
  Serious: Yes (Other)
  Sender: FDA-Public Use
  Company Number: None

PATIENT
  Sex: Female

DRUGS (2)
  1. SYNTHROID [Concomitant]
     Active Substance: LEVOTHYROXINE SODIUM
  2. SYNTHROID [Suspect]
     Active Substance: LEVOTHYROXINE SODIUM
     Indication: HYPOTHYROIDISM
     Route: 048
     Dates: start: 1985

REACTIONS (10)
  - Irritability [None]
  - Insomnia [None]
  - Product formulation issue [None]
  - Product complaint [None]
  - Visual impairment [None]
  - Chest pain [None]
  - Wheezing [None]
  - Pruritus [None]
  - Weight increased [None]
  - Dyspnoea [None]
